FAERS Safety Report 4812869-7 (Version None)
Quarter: 2005Q4

REPORT INFORMATION
  Report Type: 
  Country: None (occurrence: None)
  Receive Date: 20051028
  Receipt Date: 20041130
  Transmission Date: 20060501
  Serious: Yes (Other)
  Sender: FDA-Public Use
  Company Number: US-GLAXOSMITHKLINE-A0535548A

PATIENT
  Age: 51 Year
  Sex: Male

DRUGS (4)
  1. ADVAIR DISKUS 100/50 [Suspect]
     Indication: WHEEZING
     Dosage: 1PUFF TWICE PER DAY
     Route: 055
  2. LEXAPRO [Concomitant]
  3. ZETIA [Concomitant]
  4. UNKNOWN [Concomitant]

REACTIONS (3)
  - CHOKING [None]
  - COUGH [None]
  - DRUG INEFFECTIVE [None]
